FAERS Safety Report 20595964 (Version 3)
Quarter: 2023Q1

REPORT INFORMATION
  Report Type: Spontaneous
  Country: US (occurrence: None)
  Receive Date: 20220315
  Receipt Date: 20230223
  Transmission Date: 20230417
  Serious: No
  Sender: FDA-Public Use
  Company Number: US-ROCHE-2812000

PATIENT
  Age: 38 Year
  Sex: Female

DRUGS (1)
  1. XOLAIR [Suspect]
     Active Substance: OMALIZUMAB
     Indication: Product used for unknown indication
     Dosage: THE PATIENT STATES HER DATE OF LAST DRUG EXPOSURE OF XOLAIR WAS ON 21/DEC/2022.
     Route: 065
     Dates: start: 2017

REACTIONS (1)
  - Maternal exposure during pregnancy [Unknown]
